FAERS Safety Report 5372828-5 (Version None)
Quarter: 2007Q2

REPORT INFORMATION
  Report Type: 
  Country: None (occurrence: None)
  Receive Date: 20070626
  Receipt Date: 20070611
  Transmission Date: 20071010
  Serious: Yes (Hospitalization)
  Sender: FDA-Public Use
  Company Number: JPI-P-000836

PATIENT
  Age: 52 Year
  Sex: Male

DRUGS (5)
  1. XYREM [Suspect]
     Indication: CATAPLEXY
     Dosage: SEE IMAGE
     Route: 048
  2. METHYLPHENIDATE HCL [Concomitant]
  3. MAZINDOL (MAZINDOL) [Concomitant]
  4. FLUOXETINE [Concomitant]
  5. VENLAFAXINE HCL [Concomitant]

REACTIONS (7)
  - AGITATION [None]
  - CATAPLEXY [None]
  - CONDITION AGGRAVATED [None]
  - INITIAL INSOMNIA [None]
  - MIDDLE INSOMNIA [None]
  - PERIODIC LIMB MOVEMENT DISORDER [None]
  - RESTLESS LEGS SYNDROME [None]
